FAERS Safety Report 24208124 (Version 3)
Quarter: 2025Q1

REPORT INFORMATION
  Report Type: Report from Study
  Country: CA (occurrence: CA)
  Receive Date: 20240814
  Receipt Date: 20250106
  Transmission Date: 20250408
  Serious: Yes (Hospitalization, Other)
  Sender: SANDOZ
  Company Number: CA-002147023-NVSC2022CA082911

PATIENT
  Sex: Female

DRUGS (10)
  1. HYRIMOZ [Suspect]
     Active Substance: ADALIMUMAB-ADAZ
     Indication: Hidradenitis
     Dosage: 40 MG, QW
     Route: 058
     Dates: start: 20220328
  2. ACETAMINOPHEN [Concomitant]
     Active Substance: ACETAMINOPHEN
     Indication: Product used for unknown indication
     Route: 065
  3. AMLODIPINE [Concomitant]
     Active Substance: AMLODIPINE BESYLATE
     Indication: Product used for unknown indication
     Route: 065
  4. CALCIUM [Concomitant]
     Active Substance: CALCIUM
     Indication: Product used for unknown indication
     Route: 065
  5. HUMIRA [Concomitant]
     Active Substance: ADALIMUMAB
     Indication: Product used for unknown indication
     Route: 065
  6. MIRTAZAPINE [Concomitant]
     Active Substance: MIRTAZAPINE
     Indication: Product used for unknown indication
     Route: 065
  7. PANTOPRAZOLE [Concomitant]
     Active Substance: PANTOPRAZOLE
     Indication: Product used for unknown indication
     Route: 065
  8. Pms fluticasone hfa [Concomitant]
     Indication: Product used for unknown indication
     Route: 065
  9. ALBUTEROL [Concomitant]
     Active Substance: ALBUTEROL
     Indication: Product used for unknown indication
     Route: 065
  10. VENLAFAXINE [Concomitant]
     Active Substance: VENLAFAXINE HYDROCHLORIDE
     Indication: Product used for unknown indication
     Route: 065

REACTIONS (13)
  - Urinary tract infection [Unknown]
  - Loss of consciousness [Unknown]
  - Osteoarthritis [Unknown]
  - Rhinalgia [Unknown]
  - Blood pressure decreased [Unknown]
  - Mass [Unknown]
  - Ocular hyperaemia [Unknown]
  - Fear of injection [Unknown]
  - Visual impairment [Unknown]
  - Psoriasis [Unknown]
  - Eye discharge [Unknown]
  - Product dose omission in error [Unknown]
  - Product dose omission issue [Unknown]

NARRATIVE: CASE EVENT DATE: 20240101
